FAERS Safety Report 24105506 (Version 1)
Quarter: 2024Q3

REPORT INFORMATION
  Report Type: Spontaneous
  Country: US (occurrence: None)
  Receive Date: 20240716
  Receipt Date: 20240716
  Transmission Date: 20241016
  Serious: Yes (Other)
  Sender: Public
  Company Number: None

PATIENT
  Age: 78 Year
  Sex: Male
  Weight: 79.2 kg

DRUGS (11)
  1. RETEVMO [Suspect]
     Active Substance: SELPERCATINIB
     Indication: Non-small cell lung cancer
     Dosage: FREQUENCY : TWICE A DAY;?
     Route: 048
     Dates: start: 20240714, end: 20240716
  2. LANSOPRAZOLE [Concomitant]
  3. APIXABAN [Concomitant]
  4. carbidopa-levodopa [Concomitant]
  5. MIDODRINE [Concomitant]
  6. CELECOXIB [Concomitant]
  7. METOPROLOL SUCCINATE [Concomitant]
  8. LEVOTHYROXINE [Concomitant]
  9. ATORVASTATIN [Concomitant]
  10. PULMICORT FLEXHALER [Concomitant]
  11. levalbuterol [Concomitant]

REACTIONS (1)
  - Hypertensive urgency [None]

NARRATIVE: CASE EVENT DATE: 20240716
